FAERS Safety Report 6506033-3 (Version None)
Quarter: 2009Q4

REPORT INFORMATION
  Report Type: 
  Country: None (occurrence: None)
  Receive Date: 20091201
  Receipt Date: 20090828
  Transmission Date: 20100525
  Serious: Yes (Hospitalization, Other)
  Sender: FDA-Public Use
  Company Number: 2008-182620-NL

PATIENT
  Age: 36 Year
  Sex: Female
  Weight: 58.9676 kg

DRUGS (4)
  1. NUVARING [Suspect]
     Indication: CONTRACEPTION
     Dosage: 1 DF;
     Dates: start: 20050401, end: 20050601
  2. TYLENOL-500 [Concomitant]
  3. ASPIRIN [Concomitant]
  4. ATIVAN [Concomitant]

REACTIONS (1)
  - BASAL GANGLIA INFARCTION [None]
